FAERS Safety Report 17854298 (Version 1)
Quarter: 2020Q2

REPORT INFORMATION
  Report Type: Spontaneous
  Country: US (occurrence: US)
  Receive Date: 20200603
  Receipt Date: 20200603
  Transmission Date: 20200714
  Serious: No
  Sender: FDA-Public Use
  Company Number: US-ACCORD-156084

PATIENT
  Age: 62 Year
  Sex: Male

DRUGS (8)
  1. CYMBALTA [Concomitant]
     Active Substance: DULOXETINE HYDROCHLORIDE
  2. CYANOCOBALAMIN. [Concomitant]
     Active Substance: CYANOCOBALAMIN
  3. LEVOTHYROXINE. [Concomitant]
     Active Substance: LEVOTHYROXINE
  4. AVASTIN [Concomitant]
     Active Substance: BEVACIZUMAB
  5. LANTUS [Concomitant]
     Active Substance: INSULIN GLARGINE
  6. TYLENOL [Concomitant]
     Active Substance: ACETAMINOPHEN
  7. CAPECITABINE. [Suspect]
     Active Substance: CAPECITABINE
     Indication: COLON CANCER METASTATIC
     Dosage: STRENGTH: 150 MG?TWICE DAILY
     Route: 048
     Dates: start: 20190913
  8. CAPECITABINE NOVADOZ [Suspect]
     Active Substance: CAPECITABINE
     Indication: COLON CANCER METASTATIC
     Dosage: STRENGTH: 500 MG?TWICE DAILY
     Route: 048
     Dates: start: 20190913

REACTIONS (7)
  - Asthenia [Unknown]
  - Stomatitis [Unknown]
  - Vomiting [Unknown]
  - Headache [Unknown]
  - Nausea [Unknown]
  - Fatigue [Unknown]
  - Influenza like illness [Unknown]

NARRATIVE: CASE EVENT DATE: 20190923
